FAERS Safety Report 5132592-1 (Version None)
Quarter: 2006Q4

REPORT INFORMATION
  Report Type: 
  Country: None (occurrence: None)
  Receive Date: 20061023
  Receipt Date: 20060922
  Transmission Date: 20070319
  Serious: Yes (Life-Threatening)
  Sender: FDA-Public Use
  Company Number: KR-ROCHE-464404

PATIENT
  Age: 52 Year
  Sex: Male
  Weight: 85.2 kg

DRUGS (8)
  1. CAPECITABINE [Suspect]
     Indication: GASTRIC CANCER
     Route: 048
     Dates: start: 20060919, end: 20060921
  2. CAPECITABINE [Suspect]
     Route: 048
     Dates: start: 20061012
  3. HERCEPTIN [Suspect]
     Indication: GASTRIC CANCER
     Dosage: LOADING DOSE
     Route: 042
     Dates: start: 20060919
  4. CISPLATIN [Suspect]
     Indication: GASTRIC CANCER
     Route: 042
     Dates: start: 20060919
  5. AMIKACIN [Concomitant]
     Dates: start: 20060921, end: 20060926
  6. BROMHEXINE [Concomitant]
     Dates: start: 20060921, end: 20060926
  7. CEFOTAXIME [Concomitant]
     Dates: start: 20060921, end: 20060926
  8. METRONIDAZOLE [Concomitant]
     Dates: start: 20060921, end: 20060926

REACTIONS (1)
  - GASTRIC PERFORATION [None]
